FAERS Safety Report 21822193 (Version 1)
Quarter: 2023Q1

REPORT INFORMATION
  Report Type: Other
  Country: US (occurrence: US)
  Receive Date: 20230105
  Receipt Date: 20230105
  Transmission Date: 20230417
  Serious: Yes (Other)
  Sender: FDA-Public Use
  Company Number: US-BoehringerIngelheim-2022-BI-210260

PATIENT
  Age: 31 Year
  Sex: Male

DRUGS (2)
  1. TENECTEPLASE [Suspect]
     Active Substance: TENECTEPLASE
     Indication: Deep vein thrombosis
     Route: 042
  2. ALTEPLASE [Suspect]
     Active Substance: ALTEPLASE
     Indication: Deep vein thrombosis
     Route: 042

REACTIONS (3)
  - Therapeutic product effect incomplete [Unknown]
  - Chills [Unknown]
  - Drug intolerance [Unknown]
